FAERS Safety Report 9885246 (Version 1)
Quarter: 2014Q1

REPORT INFORMATION
  Report Type: Spontaneous
  Country: US (occurrence: None)
  Receive Date: 20140207
  Receipt Date: 20140207
  Transmission Date: 20141002
  Serious: Yes (Hospitalization)
  Sender: FDA-Public Use
  Company Number: None

PATIENT
  Age: 10 Year
  Sex: Male
  Weight: 46.5 kg

DRUGS (2)
  1. METHOTREXATE [Suspect]
  2. PEG-L-ASPARAGINASE (K-H) [Suspect]

REACTIONS (9)
  - Foaming at mouth [None]
  - Dyskinesia [None]
  - Status epilepticus [None]
  - Respiratory failure [None]
  - Convulsion [None]
  - Hemiparesis [None]
  - Oedema [None]
  - Cerebral haemorrhage [None]
  - Leukaemia [None]
